FAERS Safety Report 9641480 (Version 2)
Quarter: 2013Q4

REPORT INFORMATION
  Report Type: Spontaneous
  Country: PR (occurrence: PR)
  Receive Date: 20131023
  Receipt Date: 20131023
  Transmission Date: 20140711
  Serious: Yes (Hospitalization)
  Sender: FDA-Public Use
  Company Number: PR-ABBVIE-13P-131-1043283-00

PATIENT
  Age: 33 Year
  Sex: Female

DRUGS (3)
  1. LUPRON DEPOT [Suspect]
     Indication: PRODUCT USED FOR UNKNOWN INDICATION
     Dates: start: 2007, end: 2007
  2. LUPRON DEPOT [Suspect]
     Dates: start: 2011, end: 2011
  3. LUPRON DEPOT [Suspect]
     Dosage: ONE DOSE
     Dates: start: 20130122, end: 20130122

REACTIONS (7)
  - Hospitalisation [Unknown]
  - Local swelling [Unknown]
  - Erythema [Unknown]
  - Injection site erythema [Unknown]
  - Injection site warmth [Unknown]
  - Pain in extremity [Unknown]
  - Soft tissue infection [Unknown]
